FAERS Safety Report 17759011 (Version 2)
Quarter: 2020Q2

REPORT INFORMATION
  Report Type: Spontaneous
  Country: SE (occurrence: SE)
  Receive Date: 20200508
  Receipt Date: 20200514
  Transmission Date: 20200714
  Serious: Yes (Hospitalization)
  Sender: FDA-Public Use
  Company Number: SE-TAKEDA-2020TUS021362

PATIENT
  Sex: Female

DRUGS (3)
  1. ACICLOVIR [Concomitant]
     Active Substance: ACYCLOVIR
     Indication: ORAL HERPES
     Dosage: UNK
  2. PREDNISOLON                        /00016201/ [Concomitant]
     Active Substance: PREDNISOLONE
     Indication: COLITIS ULCERATIVE
     Dosage: 10 MILLIGRAM
  3. ENTYVIO [Suspect]
     Active Substance: VEDOLIZUMAB
     Indication: COLITIS ULCERATIVE
     Dosage: UNK
     Route: 042
     Dates: start: 20200416

REACTIONS (2)
  - Toxic skin eruption [Unknown]
  - Oral herpes [Unknown]

NARRATIVE: CASE EVENT DATE: 20200418
